FAERS Safety Report 20006054 (Version 1)
Quarter: 2021Q4

REPORT INFORMATION
  Report Type: Spontaneous
  Country: IT (occurrence: IT)
  Receive Date: 20211028
  Receipt Date: 20211028
  Transmission Date: 20220303
  Serious: Yes (Hospitalization)
  Sender: FDA-Public Use
  Company Number: IT-GILEAD-2021-0554218

PATIENT
  Age: 52 Year
  Sex: Male

DRUGS (1)
  1. VEKLURY [Suspect]
     Active Substance: REMDESIVIR
     Indication: COVID-19
     Dosage: 30 MG
     Route: 065
     Dates: start: 202001, end: 202002

REACTIONS (1)
  - Renal pain [Recovered/Resolved with Sequelae]
